FAERS Safety Report 19609850 (Version 4)
Quarter: 2022Q2

REPORT INFORMATION
  Report Type: Spontaneous
  Country: ES (occurrence: ES)
  Receive Date: 20210726
  Receipt Date: 20220524
  Transmission Date: 20220720
  Serious: Yes (Other)
  Sender: FDA-Public Use
  Company Number: ES-ALMUS S.R.L.-ES-NIC-21-00104

PATIENT
  Age: 72 Year
  Sex: Female

DRUGS (22)
  1. VENLAFAXINE HCL [Interacting]
     Active Substance: VENLAFAXINE HYDROCHLORIDE
     Indication: Fibromyalgia
     Dosage: 75 MG, 2-0-0-0
     Route: 065
  2. VENLAFAXINE HCL [Interacting]
     Active Substance: VENLAFAXINE HYDROCHLORIDE
     Indication: Anxiety
     Dosage: UNK
     Route: 065
  3. VENLAFAXINE HCL [Interacting]
     Active Substance: VENLAFAXINE HYDROCHLORIDE
     Indication: Depression
  4. ALPRAZOLAM [Interacting]
     Active Substance: ALPRAZOLAM
     Indication: Hypertension
     Dosage: 0.5 MG, AS NEEDED
  5. ALPRAZOLAM [Interacting]
     Active Substance: ALPRAZOLAM
     Indication: Anxiety
  6. LORAZEPAM [Interacting]
     Active Substance: LORAZEPAM
     Indication: Insomnia
     Dosage: 1 MG, 1X/DAY, 0-0-0-1
  7. LORMETAZEPAM [Interacting]
     Active Substance: LORMETAZEPAM
     Indication: Insomnia
     Dosage: 2 MG, 0-0-0-1
  8. TRAMADOL [Interacting]
     Active Substance: TRAMADOL
     Indication: Pain
     Dosage: 200 MG, PROLONGED RELEASE 1.5-0-1.5
     Route: 065
  9. TRAMADOL [Interacting]
     Active Substance: TRAMADOL
     Dosage: UNK
     Route: 065
  10. ESCITALOPRAM OXALATE [Interacting]
     Active Substance: ESCITALOPRAM OXALATE
     Indication: Depression
     Dosage: 20MG 1XDAY 1-0-0
     Route: 065
  11. ACETAMINOPHEN\TRAMADOL [Interacting]
     Active Substance: ACETAMINOPHEN\TRAMADOL
     Indication: Pain
     Dosage: TRAMADOL 37.5MG/PARACETAMOL 325 0-1-0
  12. IBANDRONIC ACID [Concomitant]
     Active Substance: IBANDRONIC ACID
     Indication: Osteoporosis
     Dosage: 150MG/28 DAYS
     Route: 065
  13. IRON [Concomitant]
     Active Substance: IRON
     Indication: Anaemia
     Dosage: UNK
  14. CALCIUM CARBONATE\CHOLECALCIFEROL [Concomitant]
     Active Substance: CALCIUM CARBONATE\CHOLECALCIFEROL
     Indication: Osteoporosis
     Dosage: CALCIUM CARBONATE 1500MG/COLECALCIFEROL 400IU OUT OF MEALS
     Route: 065
  15. TIZANIDINE [Concomitant]
     Active Substance: TIZANIDINE
     Indication: Muscle relaxant therapy
     Dosage: 2 MG, 1X/DAY, 1-0-0-0
  16. FERROUS FUMARATE\FOLIC ACID [Concomitant]
     Active Substance: FERROUS FUMARATE\FOLIC ACID
     Indication: Iron deficiency anaemia
     Dosage: UNK
  17. BISOPROLOL [Concomitant]
     Active Substance: BISOPROLOL
     Indication: Anxiety
     Dosage: 5 MG, MAX 2/DAY IF TACHYCARDIA
  18. BISOPROLOL [Concomitant]
     Active Substance: BISOPROLOL
     Indication: Tachycardia
  19. PANTOPRAZOLE [Concomitant]
     Active Substance: PANTOPRAZOLE
     Indication: Abdominal discomfort
     Dosage: 40 MG, 1X/DAY, 1-0-0-0
  20. SULPIRIDE [Concomitant]
     Active Substance: SULPIRIDE
     Indication: Vertigo
     Dosage: IN CASE OF DROWSINESS
  21. LIDOCAINE [Concomitant]
     Active Substance: LIDOCAINE
     Indication: Pain
     Dosage: 5 %, 1/2 PATCH/DAY
  22. FUROSEMIDE [Concomitant]
     Active Substance: FUROSEMIDE
     Indication: Hypertension
     Dosage: 40 MG, 1X/DAY, 0-0-1-0

REACTIONS (10)
  - Tremor [Recovered/Resolved]
  - Sedation [Recovered/Resolved]
  - Cognitive disorder [Recovered/Resolved]
  - Xerophthalmia [Unknown]
  - Limb discomfort [Recovered/Resolved]
  - Dry mouth [Unknown]
  - Vision blurred [Not Recovered/Not Resolved]
  - Serotonin syndrome [Recovering/Resolving]
  - Drug interaction [Unknown]
  - Dysarthria [Unknown]
